FAERS Safety Report 7790284-4 (Version None)
Quarter: 2011Q3

REPORT INFORMATION
  Report Type: 
  Country: None (occurrence: None)
  Receive Date: 20110930
  Receipt Date: 20110927
  Transmission Date: 20111222
  Serious: Yes (Other)
  Sender: FDA-Public Use
  Company Number: US-PFIZER INC-2011232245

PATIENT
  Sex: Female
  Weight: 59 kg

DRUGS (2)
  1. PRENATAL VITAMINS [Concomitant]
     Dosage: UNK
  2. DEPO-SUBQ PROVERA 104 [Suspect]
     Indication: CONTRACEPTION
     Dosage: UNK
     Dates: start: 20110804

REACTIONS (1)
  - UPPER RESPIRATORY TRACT INFECTION [None]
